FAERS Safety Report 10194718 (Version 1)
Quarter: 2014Q2

REPORT INFORMATION
  Report Type: Spontaneous
  Country: JP (occurrence: JP)
  Receive Date: 20140526
  Receipt Date: 20140526
  Transmission Date: 20141212
  Serious: Yes (Death)
  Sender: FDA-Public Use
  Company Number: JP-009507513-1405JPN011980

PATIENT
  Age: 65 Year
  Sex: Male

DRUGS (3)
  1. TEMOZOLOMIDE [Suspect]
     Indication: MALIGNANT GLIOMA
     Dosage: 75 MG/M2, UNK
  2. INTERFERON BETA [Suspect]
     Indication: MALIGNANT GLIOMA
     Dosage: 3 MILLION UNITS EVERY OTHER DAY
     Route: 042
  3. THERAPEUTIC RADIOPHARMACEUTICAL (UNSPECIFIED) [Suspect]
     Indication: MALIGNANT GLIOMA
     Dosage: 60 GY

REACTIONS (1)
  - Drug ineffective [Fatal]
